FAERS Safety Report 5715181-7 (Version None)
Quarter: 2008Q2

REPORT INFORMATION
  Report Type: 
  Country: None (occurrence: None)
  Receive Date: 20080423
  Receipt Date: 20080413
  Transmission Date: 20081010
  Serious: Yes (Hospitalization)
  Sender: FDA-Public Use
  Company Number: US-ELI_LILLY_AND_COMPANY-US200804003565

PATIENT
  Age: 60 Year
  Sex: Female

DRUGS (2)
  1. CYMBALTA [Suspect]
     Dosage: 60 MG, DAILY (1/D)
  2. CIPRO [Concomitant]
     Indication: URINARY TRACT INFECTION

REACTIONS (4)
  - CARDIOMYOPATHY [None]
  - DIZZINESS [None]
  - DRUG LEVEL INCREASED [None]
  - NAUSEA [None]
